FAERS Safety Report 6690242-7 (Version None)
Quarter: 2010Q2

REPORT INFORMATION
  Report Type: 
  Country: None (occurrence: None)
  Receive Date: 20100421
  Receipt Date: 20100410
  Transmission Date: 20101027
  Serious: Yes (Death)
  Sender: FDA-Public Use
  Company Number: BR-ROCHE-691738

PATIENT
  Sex: Female
  Weight: 58 kg

DRUGS (2)
  1. CAPECITABINE [Suspect]
     Indication: BREAST CANCER
     Dosage: 1.65 UNK, BID
     Route: 048
  2. LAPATINIB [Suspect]
     Indication: BREAST CANCER
     Dosage: 1250 MG, QD, DRUG NAME: LAPATINIB DITOSYLATE
     Route: 048
     Dates: start: 20100129

REACTIONS (1)
  - MULTI-ORGAN FAILURE [None]
